FAERS Safety Report 6196408-7 (Version None)
Quarter: 2009Q2

REPORT INFORMATION
  Report Type: 
  Country: None (occurrence: None)
  Receive Date: 20090518
  Receipt Date: 20090518
  Transmission Date: 20091009
  Serious: Yes (Other)
  Sender: FDA-Public Use
  Company Number: None

PATIENT
  Age: 64 Year
  Sex: Male
  Weight: 97.5234 kg

DRUGS (1)
  1. LUPRON DEPOT [Suspect]
     Indication: PROSTATE CANCER
     Dates: start: 20080703, end: 20080703

REACTIONS (5)
  - ALOPECIA [None]
  - HEAT STROKE [None]
  - SWEAT GLAND DISORDER [None]
  - TEMPERATURE INTOLERANCE [None]
  - UNEVALUABLE EVENT [None]
